FAERS Safety Report 9618592 (Version 2)
Quarter: 2013Q4

REPORT INFORMATION
  Report Type: Spontaneous
  Country: US (occurrence: US)
  Receive Date: 20131014
  Receipt Date: 20131115
  Transmission Date: 20140711
  Serious: Yes (Other)
  Sender: FDA-Public Use
  Company Number: US-PFIZER INC-2013291102

PATIENT
  Age: 57 Year
  Sex: Female

DRUGS (4)
  1. CELEBREX [Suspect]
     Indication: MUSCLE STRAIN
     Dosage: 200 MG, 2X/DAY
     Route: 048
     Dates: end: 20131005
  2. CELEBREX [Suspect]
     Indication: COUGH
  3. CELEBREX [Suspect]
     Indication: ARTHRITIS
  4. SPIRIVA [Concomitant]
     Dosage: UNK

REACTIONS (6)
  - Anaphylactic reaction [Recovered/Resolved]
  - Pruritus [Recovered/Resolved]
  - Rash [Recovered/Resolved]
  - Throat tightness [Recovered/Resolved]
  - Dyspnoea [Recovered/Resolved]
  - Off label use [Unknown]
